FAERS Safety Report 15075522 (Version 1)
Quarter: 2018Q2

REPORT INFORMATION
  Report Type: Report from Study
  Country: US (occurrence: US)
  Receive Date: 20180627
  Receipt Date: 20180627
  Transmission Date: 20180711
  Serious: Yes (Other)
  Sender: FDA-Public Use
  Company Number: US-SAOL THERAPEUTICS-2017SAO03442

PATIENT
  Age: 52 Year
  Sex: Female

DRUGS (3)
  1. LIORESAL [Suspect]
     Active Substance: BACLOFEN
     Dosage: 99.93 ?G, \DAY
     Route: 037
     Dates: start: 20171121
  2. LIORESAL [Suspect]
     Active Substance: BACLOFEN
     Dosage: 75.91 ?G, \DAY
     Route: 037
     Dates: start: 20171120, end: 20171121
  3. LIORESAL [Suspect]
     Active Substance: BACLOFEN
     Dosage: 99 ?G, \DAY
     Route: 037

REACTIONS (6)
  - Underdose [Recovered/Resolved]
  - Device damage [Recovered/Resolved]
  - Device dislocation [Recovered/Resolved]
  - Pain [Recovered/Resolved]
  - Muscle tightness [Recovered/Resolved]
  - Muscle spasticity [Recovered/Resolved]

NARRATIVE: CASE EVENT DATE: 20171201
